FAERS Safety Report 9051988 (Version 1)
Quarter: 2013Q1

REPORT INFORMATION
  Report Type: Spontaneous
  Country: FR (occurrence: FR)
  Receive Date: 20130207
  Receipt Date: 20130207
  Transmission Date: 20140127
  Serious: Yes (Other)
  Sender: FDA-Public Use
  Company Number: FR-JNJFOC-20130202641

PATIENT
  Sex: Female

DRUGS (1)
  1. XARELTO [Suspect]
     Indication: TRANSIENT ISCHAEMIC ATTACK
     Route: 048

REACTIONS (2)
  - Haematuria [Unknown]
  - Off label use [Unknown]
